FAERS Safety Report 8825514 (Version 2)
Quarter: 2013Q1

REPORT INFORMATION
  Report Type: Spontaneous
  Country: DE (occurrence: DE)
  Receive Date: 20121004
  Receipt Date: 20130109
  Transmission Date: 20140127
  Serious: Yes (Life-Threatening)
  Sender: FDA-Public Use
  Company Number: DE-UCBSA-067895

PATIENT
  Age: 26 Year
  Sex: Male
  Weight: 90 kg

DRUGS (4)
  1. VIMPAT [Suspect]
     Indication: GRAND MAL CONVULSION
     Route: 048
     Dates: end: 20120925
  2. VIMPAT [Interacting]
     Indication: EPILEPSY
     Route: 048
     Dates: end: 20120925
  3. OXCARBAZEPINE [Interacting]
     Indication: GRAND MAL CONVULSION
     Route: 048
     Dates: end: 20120925
  4. OXCARBAZEPINE [Interacting]
     Indication: EPILEPSY
     Route: 048
     Dates: end: 20120925

REACTIONS (2)
  - Sinus arrest [Recovered/Resolved]
  - Drug interaction [Recovered/Resolved]
